FAERS Safety Report 25718811 (Version 1)
Quarter: 2025Q3

REPORT INFORMATION
  Report Type: Spontaneous
  Country: US (occurrence: US)
  Receive Date: 20250823
  Receipt Date: 20250823
  Transmission Date: 20251020
  Serious: Yes (Hospitalization)
  Sender: ELI LILLY AND COMPANY
  Company Number: US-ELI_LILLY_AND_COMPANY-US202508013222

PATIENT
  Age: 46 Year
  Sex: Female

DRUGS (17)
  1. ZEPBOUND [Suspect]
     Active Substance: TIRZEPATIDE
     Indication: Weight control
     Route: 065
  2. ZEPBOUND [Suspect]
     Active Substance: TIRZEPATIDE
     Indication: Weight control
     Route: 065
  3. ZEPBOUND [Suspect]
     Active Substance: TIRZEPATIDE
     Indication: Weight control
     Route: 065
  4. ZEPBOUND [Suspect]
     Active Substance: TIRZEPATIDE
     Indication: Weight control
     Route: 065
  5. ZEPBOUND [Suspect]
     Active Substance: TIRZEPATIDE
     Indication: Obstructive sleep apnoea syndrome
  6. ZEPBOUND [Suspect]
     Active Substance: TIRZEPATIDE
     Indication: Obstructive sleep apnoea syndrome
  7. ZEPBOUND [Suspect]
     Active Substance: TIRZEPATIDE
     Indication: Obstructive sleep apnoea syndrome
  8. ZEPBOUND [Suspect]
     Active Substance: TIRZEPATIDE
     Indication: Obstructive sleep apnoea syndrome
  9. ZEPBOUND [Suspect]
     Active Substance: TIRZEPATIDE
     Indication: Hepatic steatosis
  10. ZEPBOUND [Suspect]
     Active Substance: TIRZEPATIDE
     Indication: Hepatic steatosis
  11. ZEPBOUND [Suspect]
     Active Substance: TIRZEPATIDE
     Indication: Hepatic steatosis
  12. ZEPBOUND [Suspect]
     Active Substance: TIRZEPATIDE
     Indication: Hepatic steatosis
  13. ZEPBOUND [Suspect]
     Active Substance: TIRZEPATIDE
     Indication: Cardiac disorder
  14. ZEPBOUND [Suspect]
     Active Substance: TIRZEPATIDE
     Indication: Cardiac disorder
  15. ZEPBOUND [Suspect]
     Active Substance: TIRZEPATIDE
     Indication: Cardiac disorder
  16. ZEPBOUND [Suspect]
     Active Substance: TIRZEPATIDE
     Indication: Cardiac disorder
  17. ROSUVASTATIN [Concomitant]
     Active Substance: ROSUVASTATIN
     Indication: Product used for unknown indication
     Dosage: 5 MG, DAILY

REACTIONS (1)
  - Pneumonia [Unknown]

NARRATIVE: CASE EVENT DATE: 20250701
